FAERS Safety Report 9220310 (Version 6)
Quarter: 2014Q2

REPORT INFORMATION
  Report Type: Spontaneous
  Country: US (occurrence: US)
  Receive Date: 20130409
  Receipt Date: 20140403
  Transmission Date: 20141212
  Serious: Yes (Other)
  Sender: FDA-Public Use
  Company Number: US-PERRIGO-13US003447

PATIENT
  Age: 66 Year
  Sex: Female
  Weight: 74.83 kg

DRUGS (7)
  1. ACETAMINOPHEN-ASPIRIN-CAFFEINE 374 [Suspect]
     Indication: HEADACHE
     Dosage: 2 CAPLETS, ONCE
     Route: 048
     Dates: start: 20130328, end: 20130328
  2. LIPITOR [Concomitant]
     Indication: PRODUCT USED FOR UNKNOWN INDICATION
     Dosage: UNKNOWN
     Route: 065
  3. BAYER ASPIRIN [Concomitant]
     Indication: ANTICOAGULANT THERAPY
     Dosage: 81 MG, 3-4 TIMES WEEKLY
     Route: 048
     Dates: start: 201302, end: 2013
  4. ALLOPURINOL [Concomitant]
     Indication: PRODUCT USED FOR UNKNOWN INDICATION
     Dosage: 300MG UNKNOWN
     Route: 065
  5. LISINOPRIL [Concomitant]
     Indication: PRODUCT USED FOR UNKNOWN INDICATION
     Dosage: 10MG UNKNOWN
     Route: 065
  6. CELEBREX [Concomitant]
     Indication: PRODUCT USED FOR UNKNOWN INDICATION
     Dosage: 100MG UNKNOWN
     Route: 065
  7. GLIMEPIRIDE [Concomitant]
     Indication: TYPE 2 DIABETES MELLITUS
     Dosage: 1 MG UNKNOWN
     Route: 065

REACTIONS (11)
  - Hypersensitivity [Recovered/Resolved]
  - Throat tightness [Recovered/Resolved]
  - Blood pressure decreased [Recovered/Resolved]
  - Apparent death [Recovered/Resolved]
  - Vision blurred [Recovered/Resolved]
  - Swelling face [Recovered/Resolved]
  - Swollen tongue [Recovered/Resolved]
  - Pharyngeal oedema [Recovered/Resolved]
  - Pruritus [Recovered/Resolved]
  - Oedema mouth [Recovered/Resolved]
  - Drug ineffective for unapproved indication [Unknown]
